FAERS Safety Report 19071513 (Version 1)
Quarter: 2021Q1

REPORT INFORMATION
  Report Type: Spontaneous
  Country: US (occurrence: US)
  Receive Date: 20210328
  Receipt Date: 20210328
  Transmission Date: 20210420
  Serious: No
  Sender: FDA-Public Use
  Company Number: None

PATIENT
  Age: 35 Year
  Sex: Female
  Weight: 63.9 kg

DRUGS (1)
  1. CLARITIN REDITABS [Suspect]
     Active Substance: LORATADINE
     Indication: SEASONAL ALLERGY
     Dates: start: 20210315, end: 20210319

REACTIONS (3)
  - Oral pain [None]
  - Gingival pain [None]
  - Stomatitis [None]

NARRATIVE: CASE EVENT DATE: 20210315
